FAERS Safety Report 8489963-5 (Version None)
Quarter: 2012Q3

REPORT INFORMATION
  Report Type: 
  Country: None (occurrence: None)
  Receive Date: 20120705
  Receipt Date: 20120627
  Transmission Date: 20120928
  Serious: Yes (Hospitalization)
  Sender: FDA-Public Use
  Company Number: JP-EISAI INC-E7389-02431-SPO-JP

PATIENT
  Age: 40 Year
  Sex: Female

DRUGS (5)
  1. ACETAMINOPHEN [Concomitant]
  2. LYRICA [Concomitant]
     Route: 048
  3. HALAVEN [Suspect]
     Indication: BREAST CANCER RECURRENT
     Route: 041
     Dates: start: 20120425, end: 20120425
  4. OXYCONTIN [Concomitant]
     Route: 048
  5. LAXATIVE AGENT [Concomitant]

REACTIONS (1)
  - HYPERTHERMIA [None]
